FAERS Safety Report 16393035 (Version 9)
Quarter: 2019Q2

REPORT INFORMATION
  Report Type: Spontaneous
  Country: DE (occurrence: DE)
  Receive Date: 20190605
  Receipt Date: 20190620
  Transmission Date: 20190711
  Serious: Yes (Other)
  Sender: FDA-Public Use
  Company Number: PHHY2019DE123102

PATIENT
  Age: 44 Year
  Sex: Male

DRUGS (13)
  1. VALGANCICLOVIR. [Suspect]
     Active Substance: VALGANCICLOVIR
     Indication: CYTOMEGALOVIRUS VIRAEMIA
     Dosage: 900 MG, QD
     Route: 065
  2. ACICLOVIR [Suspect]
     Active Substance: ACYCLOVIR
     Indication: ALLOGENIC STEM CELL TRANSPLANTATION
     Dosage: 400 MG, BID
     Route: 065
  3. ACICLOVIR [Suspect]
     Active Substance: ACYCLOVIR
     Indication: IMMUNOSUPPRESSANT DRUG THERAPY
     Dosage: 800 MG, QD
     Route: 065
  4. MYCOPHENOLATE [Suspect]
     Active Substance: MYCOPHENOLIC ACID
     Indication: IMMUNOSUPPRESSANT DRUG THERAPY
  5. VALGANCICLOVIR. [Suspect]
     Active Substance: VALGANCICLOVIR
     Dosage: 450 MG, BID
     Route: 065
  6. PREDNISOLONE. [Suspect]
     Active Substance: PREDNISOLONE
     Indication: ALLOGENIC STEM CELL TRANSPLANTATION
     Dosage: 10 MG, UNK
     Route: 065
  7. VALGANCICLOVIR. [Suspect]
     Active Substance: VALGANCICLOVIR
     Indication: ANTIVIRAL PROPHYLAXIS
     Dosage: 1800 MG, QD
     Route: 065
  8. CICLOSPORIN [Suspect]
     Active Substance: CYCLOSPORINE
     Indication: ALLOGENIC STEM CELL TRANSPLANTATION
     Dosage: MEASURED BLOOD CONCENTRATIONS 180-220 MICROGRAM/L
     Route: 048
  9. LETERMOVIR [Interacting]
     Active Substance: LETERMOVIR
     Indication: ANTIVIRAL PROPHYLAXIS
     Dosage: 240 MG, QD
     Route: 048
  10. CICLOSPORIN [Interacting]
     Active Substance: CYCLOSPORINE
     Indication: IMMUNOSUPPRESSANT DRUG THERAPY
  11. MYCOPHENOLATE [Suspect]
     Active Substance: MYCOPHENOLIC ACID
     Indication: ALLOGENIC STEM CELL TRANSPLANTATION
     Dosage: 720 MG, QD
     Route: 065
  12. PREDNISOLONE. [Suspect]
     Active Substance: PREDNISOLONE
     Indication: IMMUNOSUPPRESSANT DRUG THERAPY
     Dosage: 1 MG, UNK
     Route: 065
  13. LETERMOVIR [Interacting]
     Active Substance: LETERMOVIR
     Dosage: 480 MG, QD
     Route: 065

REACTIONS (7)
  - Cytomegalovirus infection [Recovering/Resolving]
  - Graft versus host disease in gastrointestinal tract [Unknown]
  - Pathogen resistance [Unknown]
  - Product use in unapproved indication [Unknown]
  - Neutropenia [Recovered/Resolved]
  - Drug interaction [Unknown]
  - Mucosal inflammation [Unknown]
